FAERS Safety Report 17218294 (Version 1)
Quarter: 2019Q4

REPORT INFORMATION
  Report Type: Spontaneous
  Country: US (occurrence: US)
  Receive Date: 20191227
  Receipt Date: 20191227
  Transmission Date: 20200122
  Serious: No
  Sender: FDA-Public Use
  Company Number: None

PATIENT
  Age: 65 Year
  Sex: Female
  Weight: 86 kg

DRUGS (1)
  1. NOREPINEPHRINE. [Suspect]
     Active Substance: NOREPINEPHRINE
     Route: 041
     Dates: start: 20191227

REACTIONS (2)
  - Treatment failure [None]
  - Suspected product quality issue [None]

NARRATIVE: CASE EVENT DATE: 20191227
